FAERS Safety Report 11782862 (Version 2)
Quarter: 2015Q4

REPORT INFORMATION
  Report Type: Spontaneous
  Country: US (occurrence: US)
  Receive Date: 20151127
  Receipt Date: 20151225
  Transmission Date: 20160305
  Serious: No
  Sender: FDA-Public Use
  Company Number: PHEH2015US024536

PATIENT
  Age: 53 Year
  Sex: Male

DRUGS (1)
  1. SANDOSTATIN [Suspect]
     Active Substance: OCTREOTIDE ACETATE
     Indication: PRIMITIVE NEUROECTODERMAL TUMOUR
     Dosage: UNK
     Route: 065
     Dates: start: 20140107, end: 20141210

REACTIONS (2)
  - Lacrimation increased [Recovered/Resolved]
  - Seasonal allergy [Recovered/Resolved]
